FAERS Safety Report 17705839 (Version 2)
Quarter: 2020Q2

REPORT INFORMATION
  Report Type: Report from Study
  Country: US (occurrence: US)
  Receive Date: 20200424
  Receipt Date: 20200602
  Transmission Date: 20200714
  Serious: Yes (Other)
  Sender: FDA-Public Use
  Company Number: NVSC2020US108148

PATIENT
  Sex: Female

DRUGS (1)
  1. BEOVU [Suspect]
     Active Substance: BROLUCIZUMAB-DBLL
     Indication: MACULAR DEGENERATION
     Dosage: UNK (VIAL)
     Route: 047

REACTIONS (2)
  - Macular degeneration [Unknown]
  - Visual acuity reduced [Unknown]
